FAERS Safety Report 5771874-7 (Version None)
Quarter: 2008Q2

REPORT INFORMATION
  Report Type: 
  Country: None (occurrence: None)
  Receive Date: 20080613
  Receipt Date: 20080609
  Transmission Date: 20081010
  Serious: Yes (Other)
  Sender: FDA-Public Use
  Company Number: B0523281A

PATIENT
  Age: 61 Year
  Sex: Female

DRUGS (9)
  1. RANIPLEX [Suspect]
     Route: 048
     Dates: start: 20070926, end: 20080314
  2. TAXOL [Suspect]
     Dates: start: 20070905, end: 20080314
  3. KYTRIL [Suspect]
     Dates: start: 20070905, end: 20080314
  4. CORDARONE [Concomitant]
     Dates: start: 20070901
  5. ALDACTONE [Concomitant]
     Indication: ASCITES
  6. SECTRAL [Concomitant]
     Dates: start: 20070901
  7. CARBOPLATIN [Concomitant]
     Dates: start: 20070905, end: 20071109
  8. MORPHINE [Concomitant]
  9. ANGIOTENSIN-CONVERTING ENZYME INHIBITOR (UNSPECIFIED) [Concomitant]

REACTIONS (7)
  - BLOOD DISORDER [None]
  - GASTROINTESTINAL DISORDER [None]
  - NERVOUS SYSTEM DISORDER [None]
  - NEURALGIA [None]
  - PRURITUS [None]
  - RASH ERYTHEMATOUS [None]
  - SKIN EXFOLIATION [None]
